FAERS Safety Report 9482155 (Version 1)
Quarter: 2013Q3

REPORT INFORMATION
  Report Type: Report from Study
  Country: GB (occurrence: GB)
  Receive Date: 20130828
  Receipt Date: 20130828
  Transmission Date: 20140515
  Serious: Yes (Hospitalization)
  Sender: FDA-Public Use
  Company Number: GB-JNJFOC-20130811039

PATIENT
  Age: 68 Year
  Sex: Male
  Weight: 127 kg

DRUGS (21)
  1. USTEKINUMAB [Suspect]
     Indication: PSORIASIS
     Route: 058
     Dates: start: 20110316, end: 20130807
  2. BUMETANIDE [Concomitant]
     Route: 065
     Dates: start: 20080301
  3. CARVEDILOL [Concomitant]
     Route: 065
     Dates: start: 20080501
  4. CO-DYDRAMOL [Concomitant]
     Route: 065
     Dates: start: 20110301
  5. HYDROXYZINE [Concomitant]
     Route: 065
     Dates: start: 20100201
  6. METFORMIN [Concomitant]
     Route: 065
     Dates: start: 20080701
  7. RAMIPRIL [Concomitant]
     Route: 065
     Dates: start: 20010401
  8. SPIRONOLACTONE [Concomitant]
     Route: 065
     Dates: start: 20080501
  9. VITAMIN B [Concomitant]
     Route: 065
     Dates: start: 20100701
  10. WARFARIN [Concomitant]
     Route: 065
     Dates: start: 20080301
  11. THIAMINE [Concomitant]
     Route: 065
     Dates: start: 20100701
  12. VESICARE [Concomitant]
     Route: 065
     Dates: start: 20100101
  13. EPLERENONE [Concomitant]
     Route: 065
     Dates: start: 20110428
  14. TRAMADOL [Concomitant]
     Route: 065
     Dates: start: 20110614
  15. MACROGOL [Concomitant]
     Route: 065
     Dates: start: 20110708
  16. GABAPENTIN [Concomitant]
     Route: 065
     Dates: start: 20120626
  17. DOMPERIDONE [Concomitant]
     Route: 065
     Dates: start: 20120626
  18. TAMSULOSIN HYDROCHLORIDE [Concomitant]
     Route: 065
     Dates: start: 20121103
  19. FINASTERIDE [Concomitant]
     Route: 065
     Dates: start: 20121115
  20. VALSARTAN [Concomitant]
     Route: 065
     Dates: start: 20130425
  21. FUROSEMIDE [Concomitant]
     Route: 065
     Dates: start: 20130624

REACTIONS (3)
  - Renal failure [Recovered/Resolved]
  - Respiratory failure [Recovered/Resolved]
  - Lower respiratory tract infection [Recovered/Resolved]
